FAERS Safety Report 12172606 (Version 1)
Quarter: 2016Q1

REPORT INFORMATION
  Report Type: Spontaneous
  Country: US (occurrence: US)
  Receive Date: 20160311
  Receipt Date: 20160311
  Transmission Date: 20160526
  Serious: Yes (Hospitalization, Other)
  Sender: FDA-Public Use
  Company Number: PHHY2016US030069

PATIENT
  Age: 37 Year
  Sex: Male

DRUGS (3)
  1. CLOZAPINE. [Suspect]
     Active Substance: CLOZAPINE
     Indication: PRODUCT USED FOR UNKNOWN INDICATION
     Route: 065
  2. HEROIN [Suspect]
     Active Substance: DIACETYLMORPHINE
     Indication: PRODUCT USED FOR UNKNOWN INDICATION
     Route: 065
  3. METHADONE [Suspect]
     Active Substance: METHADONE HYDROCHLORIDE
     Indication: PRODUCT USED FOR UNKNOWN INDICATION
     Route: 065

REACTIONS (14)
  - Coma [Recovering/Resolving]
  - Pyrexia [Recovering/Resolving]
  - Respiratory failure [Recovering/Resolving]
  - Secretion discharge [Recovering/Resolving]
  - Tachycardia [Recovering/Resolving]
  - Intentional overdose [Unknown]
  - Delirium [Recovered/Resolved]
  - Gastrointestinal sounds abnormal [Recovering/Resolving]
  - Dry skin [Recovering/Resolving]
  - Dry mouth [Recovering/Resolving]
  - Product use issue [Unknown]
  - Substance abuse [Unknown]
  - Miosis [Recovering/Resolving]
  - Loss of consciousness [Recovering/Resolving]
